FAERS Safety Report 23474563 (Version 1)
Quarter: 2024Q1

REPORT INFORMATION
  Report Type: Spontaneous
  Country: PL (occurrence: PL)
  Receive Date: 20240204
  Receipt Date: 20240204
  Transmission Date: 20240410
  Serious: Yes (Hospitalization, Other)
  Sender: FDA-Public Use
  Company Number: PL-EXELIXIS-CABO-23064388

PATIENT
  Age: 62 Year
  Sex: Female

DRUGS (4)
  1. CABOMETYX [Suspect]
     Active Substance: CABOZANTINIB S-MALATE
     Indication: Hepatocellular carcinoma
     Dosage: 40 MG SECOND COURSE, 1X40MG
     Route: 048
  2. CABOMETYX [Suspect]
     Active Substance: CABOZANTINIB S-MALATE
     Dosage: 60 MG FIRST COURSE, 1X60MG
     Route: 048
     Dates: start: 20221128
  3. ATEZOLIZUMAB [Suspect]
     Active Substance: ATEZOLIZUMAB
     Indication: Hepatocellular carcinoma
     Dosage: 1200 MG 33 COURSES (PFS 22 MONTHS UNTIL /MAY/2020), 74 CYCLES
     Route: 042
     Dates: start: 20180627
  4. BEVACIZUMAB [Suspect]
     Active Substance: BEVACIZUMAB
     Indication: Hepatocellular carcinoma
     Dosage: 1050 MG 33 COURSES (PFS 22 MONTHS UNTIL /MAY/2020), 74 CYCLES
     Dates: start: 20180627

REACTIONS (6)
  - Hypothyroidism [Unknown]
  - Asthenia [Unknown]
  - Diarrhoea [Unknown]
  - Hepatocellular carcinoma [Unknown]
  - Alanine aminotransferase increased [Unknown]
  - Proteinuria [Unknown]

NARRATIVE: CASE EVENT DATE: 20220101
